FAERS Safety Report 23343695 (Version 3)
Quarter: 2024Q4

REPORT INFORMATION
  Report Type: Spontaneous
  Country: GB (occurrence: GB)
  Receive Date: 20231227
  Receipt Date: 20241025
  Transmission Date: 20250115
  Serious: Yes (Hospitalization)
  Sender: MYLAN
  Company Number: GB-MYLANLABS-2023M1136779

PATIENT
  Sex: Male

DRUGS (2)
  1. CLOZARIL [Suspect]
     Active Substance: CLOZAPINE
     Indication: Schizophrenia
     Dosage: UNK
     Route: 048
     Dates: start: 20140630
  2. CLOZARIL [Suspect]
     Active Substance: CLOZAPINE
     Dosage: UNK (STOP DATE: 17TH OR 18TH OCTOBER)
     Route: 048
     Dates: start: 20240927, end: 202410

REACTIONS (2)
  - Hospitalisation [Recovered/Resolved]
  - Therapy cessation [Unknown]
